FAERS Safety Report 8543221-9 (Version None)
Quarter: 2012Q3

REPORT INFORMATION
  Report Type: 
  Country: None (occurrence: None)
  Receive Date: 20120716
  Receipt Date: 20120629
  Transmission Date: 20120928
  Serious: Yes (Hospitalization, Other)
  Sender: FDA-Public Use
  Company Number: 2012-000512

PATIENT
  Age: 66 Year
  Sex: Female

DRUGS (9)
  1. ACTONEL [Suspect]
     Indication: OSTEOPOROSIS
     Dosage: 35 MG ONCE WEEKLY, ORAL
     Route: 048
     Dates: start: 20030101, end: 20080101
  2. ALENDRONATE SODIUM [Suspect]
     Indication: OSTEOPOROSIS
     Dosage: 70 MG, ONCE WEEKLY, ORAL
     Route: 048
     Dates: start: 20081208, end: 20100501
  3. VITAMIN D (COLECALCIFEROL) [Concomitant]
  4. ASPIRIN [Concomitant]
  5. CALCIUM [Concomitant]
  6. ACTONEL [Suspect]
     Indication: OSTEOPOROSIS
     Dosage: 30 MG, 1/WEEK, ORAL
     Route: 048
     Dates: start: 20020301
  7. VITAMIN E [Concomitant]
  8. THYROID TAB [Concomitant]
  9. VERAPAMIL [Concomitant]

REACTIONS (5)
  - ATYPICAL FEMUR FRACTURE [None]
  - STRESS FRACTURE [None]
  - FEMUR FRACTURE [None]
  - FALL [None]
  - FRACTURE DISPLACEMENT [None]
